FAERS Safety Report 8880125 (Version 1)
Quarter: 2012Q4

REPORT INFORMATION
  Report Type: 
  Country: JP (occurrence: JP)
  Receive Date: 20121031
  Receipt Date: 20121031
  Transmission Date: 20130627
  Serious: Yes (Hospitalization, Other)
  Sender: FDA-Public Use
  Company Number: JP-PFIZER INC-2012207302

PATIENT
  Age: 73 Year
  Sex: Female

DRUGS (12)
  1. TAKEPRON [Suspect]
     Indication: GASTRIC ULCER
     Dosage: 15 mg, UNK
     Route: 048
     Dates: start: 20120703, end: 20120802
  2. OLMETEC [Suspect]
     Indication: HYPERTENSION
     Dosage: 20 mg, UNK
     Route: 048
     Dates: start: 20120712, end: 20120802
  3. AMLODIN [Suspect]
     Indication: HYPERTENSION
     Dosage: 2.5 mg, UNK
     Route: 048
     Dates: start: 20120712, end: 20120803
  4. FEBURIC [Suspect]
     Indication: GOUT
     Dosage: 20 mg, 1x/day
     Route: 048
     Dates: start: 20120721, end: 20120723
  5. FEBURIC [Suspect]
     Dosage: 10 mg, 1x/day
     Route: 048
     Dates: start: 20120724, end: 20120731
  6. MUCOSOLVAN [Suspect]
     Indication: SPUTUM ABNORMAL
     Dosage: 15 mg, 3x/day
     Route: 048
     Dates: start: 20120724, end: 20120731
  7. BAKTAR [Suspect]
     Indication: INFECTION PROPHYLAXIS
     Dosage: 4 DF
     Route: 048
     Dates: start: 20120721, end: 20120731
  8. LASIX [Suspect]
     Indication: DIURESIS
     Dosage: 40 mg, UNK
     Route: 048
     Dates: start: 20120731, end: 20120802
  9. ADALAT CR [Suspect]
     Indication: HYPERTENSION
     Dosage: 40 mg, UNK
     Route: 048
     Dates: start: 20120731, end: 20120803
  10. MEDICON [Concomitant]
     Dosage: 45 mg, 1x/day
     Route: 048
     Dates: start: 20120724, end: 20120731
  11. PL GRAN. [Concomitant]
     Dosage: 3 DF, 1x/day
     Route: 048
     Dates: start: 20120724, end: 20120731
  12. GASTER [Concomitant]
     Indication: GASTRIC ULCER
     Dosage: 10 mg, 1x/day
     Dates: start: 20120804

REACTIONS (2)
  - Drug reaction with eosinophilia and systemic symptoms [Not Recovered/Not Resolved]
  - Rash [Recovering/Resolving]
